FAERS Safety Report 18711629 (Version 1)
Quarter: 2021Q1

REPORT INFORMATION
  Report Type: Spontaneous
  Country: US (occurrence: US)
  Receive Date: 20210106
  Receipt Date: 20210106
  Transmission Date: 20210419
  Serious: No
  Sender: FDA-Public Use
  Company Number: None

PATIENT
  Sex: Male

DRUGS (4)
  1. KEPPRA [Concomitant]
     Active Substance: LEVETIRACETAM
  2. LEVETACETAM [Concomitant]
  3. TOPIRAMATE. [Concomitant]
     Active Substance: TOPIRAMATE
  4. VIGABATRIN. [Suspect]
     Active Substance: VIGABATRIN
     Indication: EPILEPSY
     Route: 048
     Dates: start: 20200904

REACTIONS (3)
  - Restlessness [None]
  - Irritability [None]
  - Withdrawal syndrome [None]
